FAERS Safety Report 6479938-X (Version None)
Quarter: 2009Q4

REPORT INFORMATION
  Report Type: 
  Country: None (occurrence: None)
  Receive Date: 20091208
  Receipt Date: 20091116
  Transmission Date: 20100525
  Serious: Yes (Hospitalization)
  Sender: FDA-Public Use
  Company Number: FR-SANOFI-AVENTIS-2009SA002599

PATIENT
  Age: 49 Year
  Sex: Female

DRUGS (3)
  1. LANTUS [Suspect]
     Route: 058
     Dates: end: 20091002
  2. LANTUS [Suspect]
     Dosage: 16 TO 19 IU DAILY
     Route: 058
     Dates: start: 20031009
  3. LUTENYL [Concomitant]
     Route: 048

REACTIONS (5)
  - CONJUNCTIVAL HAEMORRHAGE [None]
  - EPISTAXIS [None]
  - HAEMATOMA [None]
  - PANCYTOPENIA [None]
  - REFRACTORY ANAEMIA WITH AN EXCESS OF BLASTS [None]
